FAERS Safety Report 6618752-9 (Version None)
Quarter: 2010Q1

REPORT INFORMATION
  Report Type: 
  Country: None (occurrence: None)
  Receive Date: 20100308
  Receipt Date: 20100302
  Transmission Date: 20100710
  Serious: No
  Sender: FDA-Public Use
  Company Number: JP-SANOFI-AVENTIS-2010SA011278

PATIENT
  Age: 48 Year
  Sex: Female

DRUGS (1)
  1. ALLEGRA [Suspect]
     Route: 048

REACTIONS (5)
  - ENANTHEMA [None]
  - GENERALISED ERYTHEMA [None]
  - ORAL MUCOSAL ERUPTION [None]
  - OROPHARYNGEAL PAIN [None]
  - TOXIC SKIN ERUPTION [None]
